FAERS Safety Report 22000509 (Version 1)
Quarter: 2023Q1

REPORT INFORMATION
  Report Type: Spontaneous
  Country: JP (occurrence: JP)
  Receive Date: 20230216
  Receipt Date: 20230216
  Transmission Date: 20230418
  Serious: Yes (Hospitalization, Other)
  Sender: FDA-Public Use
  Company Number: JP-MSD-M2023-05556

PATIENT
  Age: 7 Decade
  Sex: Male

DRUGS (1)
  1. KEYTRUDA [Suspect]
     Active Substance: PEMBROLIZUMAB
     Indication: Colorectal cancer
     Dosage: 200 MILLIGRAM, Q3W
     Route: 041
     Dates: start: 202211, end: 202212

REACTIONS (3)
  - Adrenocortical insufficiency acute [Recovered/Resolved]
  - Hepatic function abnormal [Recovered/Resolved]
  - Hypopituitarism [Recovered/Resolved]

NARRATIVE: CASE EVENT DATE: 20221201
